FAERS Safety Report 5520955-1 (Version None)
Quarter: 2007Q4

REPORT INFORMATION
  Report Type: 
  Country: None (occurrence: None)
  Receive Date: 20071119
  Receipt Date: 20071119
  Transmission Date: 20080405
  Serious: Yes (Hospitalization)
  Sender: FDA-Public Use
  Company Number: PHHO2005PL16601

PATIENT
  Age: 78 Year
  Sex: Female
  Weight: 70 kg

DRUGS (4)
  1. DARIFENACIN VS PLACEBO [Suspect]
     Indication: HYPERTONIC BLADDER
     Route: 048
     Dates: start: 20050909, end: 20050925
  2. BENALAPRIL [Concomitant]
  3. LOKREN [Concomitant]
  4. SPIRONOL [Concomitant]

REACTIONS (6)
  - ANAEMIA [None]
  - DIVERTICULUM [None]
  - GASTROINTESTINAL HAEMORRHAGE [None]
  - HYPOTENSION [None]
  - HYPOTONIA [None]
  - RECTAL HAEMORRHAGE [None]
